FAERS Safety Report 15545598 (Version 2)
Quarter: 2019Q1

REPORT INFORMATION
  Report Type: Spontaneous
  Country: US (occurrence: US)
  Receive Date: 20181024
  Receipt Date: 20190212
  Transmission Date: 20190417
  Serious: Yes (Hospitalization, Other)
  Sender: FDA-Public Use
  Company Number: US-GLAXOSMITHKLINE-US2018GSK192788

PATIENT
  Sex: Female

DRUGS (4)
  1. LAMOTRIGINE. [Suspect]
     Active Substance: LAMOTRIGINE
     Dosage: 25 MG, UNK
     Route: 065
     Dates: start: 20161109
  2. LAMOTRIGINE. [Suspect]
     Active Substance: LAMOTRIGINE
     Dosage: 100 MG, UNK
     Route: 065
     Dates: start: 20161109
  3. LAMICTAL [Suspect]
     Active Substance: LAMOTRIGINE
     Indication: SEIZURE
     Dosage: 100 MG, BID
     Route: 048
  4. LAMOTRIGINE. [Suspect]
     Active Substance: LAMOTRIGINE
     Indication: SEIZURE
     Dosage: 25 MG, UNK
     Route: 065
     Dates: start: 20161004

REACTIONS (18)
  - Eye swelling [Unknown]
  - Pruritus [Unknown]
  - Urticaria [Unknown]
  - Mouth swelling [Unknown]
  - Rash pruritic [Unknown]
  - Drug reaction with eosinophilia and systemic symptoms [Unknown]
  - Stevens-Johnson syndrome [Unknown]
  - Conjunctivitis [Unknown]
  - Lip swelling [Unknown]
  - Lip blister [Unknown]
  - Swollen tongue [Unknown]
  - Rash erythematous [Unknown]
  - Angioedema [Unknown]
  - Swelling of eyelid [Unknown]
  - Nasal oedema [Unknown]
  - Idiopathic urticaria [Unknown]
  - Rash [Unknown]
  - Erythema [Unknown]
